FAERS Safety Report 25949584 (Version 1)
Quarter: 2025Q4

REPORT INFORMATION
  Report Type: Spontaneous
  Country: JP (occurrence: JP)
  Receive Date: 20251022
  Receipt Date: 20251022
  Transmission Date: 20260117
  Serious: Yes (Hospitalization, Other)
  Sender: PFIZER
  Company Number: JP-PFIZER INC-PV202500124052

PATIENT
  Age: 78 Year
  Sex: Male

DRUGS (4)
  1. TAFAMIDIS [Suspect]
     Active Substance: TAFAMIDIS
     Indication: Cardiac amyloidosis
     Dosage: 61 MG
     Route: 048
  2. OLMESARTAN [Concomitant]
     Active Substance: OLMESARTAN
     Indication: Hypertension
     Dosage: 10 MG
     Route: 048
  3. SPIRONOLACTONE [Concomitant]
     Active Substance: SPIRONOLACTONE
     Indication: Hypertension
     Dosage: 25 MG
     Route: 048
  4. EDOXABAN [Concomitant]
     Active Substance: EDOXABAN
     Indication: Dyslipidaemia
     Dosage: 30 MG
     Route: 048

REACTIONS (1)
  - Atrial fibrillation [Unknown]
